FAERS Safety Report 11846701 (Version 1)
Quarter: 2015Q4

REPORT INFORMATION
  Report Type: Spontaneous
  Country: FR (occurrence: FR)
  Receive Date: 20151217
  Receipt Date: 20151217
  Transmission Date: 20160305
  Serious: Yes (Other)
  Sender: FDA-Public Use
  Company Number: FR-TEVA-618827ISR

PATIENT
  Age: 87 Year
  Sex: Female

DRUGS (1)
  1. COTRIMOXAZOLE [Suspect]
     Active Substance: SULFAMETHOXAZOLE\TRIMETHOPRIM
     Indication: URINARY TRACT INFECTION
     Dosage: 1 DF = TRIMETHOPRIME 160 MG + SULFAMETHOXAZOLE 800 MG

REACTIONS (4)
  - Asthmatic crisis [Unknown]
  - Nightmare [Unknown]
  - Muscle disorder [Unknown]
  - Erythema [Unknown]
